FAERS Safety Report 4486741-9 (Version None)
Quarter: 2004Q4

REPORT INFORMATION
  Report Type: 
  Country: None (occurrence: None)
  Receive Date: 20041021
  Receipt Date: 20041012
  Transmission Date: 20050328
  Serious: Yes (Death)
  Sender: FDA-Public Use
  Company Number: J081-002-001699

PATIENT
  Age: 82 Year
  Sex: Male

DRUGS (3)
  1. ARICEPT [Suspect]
     Indication: DEMENTIA ALZHEIMER'S TYPE
     Dosage: 5 MG, 1 IN 1 D, ORAL
     Route: 048
     Dates: start: 20040408, end: 20040703
  2. NITRAZEPAM [Concomitant]
  3. BORRAGINOL (BORRAGINOL  A) [Concomitant]

REACTIONS (9)
  - ABNORMAL BEHAVIOUR [None]
  - BLOOD AMYLASE ABNORMAL [None]
  - BLOOD CHOLESTEROL ABNORMAL [None]
  - CEREBRAL DISORDER [None]
  - HAEMOGLOBIN ABNORMAL [None]
  - MYOCARDIAL ISCHAEMIA [None]
  - RED BLOOD CELL ABNORMALITY [None]
  - SUDDEN DEATH [None]
  - TREATMENT NONCOMPLIANCE [None]
